FAERS Safety Report 4741502-8 (Version None)
Quarter: 2005Q3

REPORT INFORMATION
  Report Type: 
  Country: None (occurrence: None)
  Receive Date: 20050808
  Receipt Date: 20050801
  Transmission Date: 20060218
  Serious: Yes (Death)
  Sender: FDA-Public Use
  Company Number: WAES 0508DEU00028

PATIENT
  Age: 71 Year
  Sex: Female

DRUGS (2)
  1. VYTORIN [Suspect]
     Dosage: 10-20 MG DAILY; PO
     Route: 048
     Dates: start: 20050304
  2. [THERAPY UNSPECIFIED] [Concomitant]

REACTIONS (1)
  - DEATH [None]
